FAERS Safety Report 8594769-2 (Version None)
Quarter: 2012Q3

REPORT INFORMATION
  Report Type: 
  Country: None (occurrence: None)
  Receive Date: 20120815
  Receipt Date: 20120810
  Transmission Date: 20120928
  Serious: Yes (Other)
  Sender: FDA-Public Use
  Company Number: US-AMGEN-USASP2012050758

PATIENT
  Sex: Female

DRUGS (1)
  1. PROLIA [Suspect]
     Indication: OSTEOPOROSIS POSTMENOPAUSAL
     Dosage: 1 UNK, UNK
     Dates: start: 20110101

REACTIONS (6)
  - PAIN IN JAW [None]
  - GASTROINTESTINAL MALFORMATION [None]
  - GASTROINTESTINAL DISORDER [None]
  - INTESTINAL RESECTION [None]
  - LARGE INTESTINAL ULCER [None]
  - ABDOMINAL PAIN [None]
